FAERS Safety Report 6827790-2 (Version None)
Quarter: 2010Q3

REPORT INFORMATION
  Report Type: 
  Country: None (occurrence: None)
  Receive Date: 20100709
  Receipt Date: 20070128
  Transmission Date: 20110219
  Serious: No
  Sender: FDA-Public Use
  Company Number: US-PFIZER INC-2007008444

PATIENT
  Sex: Female
  Weight: 72.57 kg

DRUGS (3)
  1. CHANTIX [Suspect]
     Indication: SMOKING CESSATION THERAPY
     Route: 048
     Dates: start: 20061213, end: 20061201
  2. DRUG, UNSPECIFIED [Suspect]
     Indication: INTERVERTEBRAL DISC DISPLACEMENT
     Dates: end: 20061201
  3. NEURONTIN [Concomitant]

REACTIONS (2)
  - HEADACHE [None]
  - NAUSEA [None]
